FAERS Safety Report 11589625 (Version 1)
Quarter: 2015Q4

REPORT INFORMATION
  Report Type: Spontaneous
  Country: US (occurrence: US)
  Receive Date: 20151002
  Receipt Date: 20151002
  Transmission Date: 20160304
  Serious: Yes (Other)
  Sender: FDA-Public Use
  Company Number: US-JNJFOC-20150908113

PATIENT
  Sex: Female
  Weight: 86 kg

DRUGS (1)
  1. TOPAMAX [Suspect]
     Active Substance: TOPIRAMATE
     Indication: MIGRAINE PROPHYLAXIS
     Route: 048
     Dates: start: 2013

REACTIONS (4)
  - Weight increased [Recovered/Resolved]
  - Fatigue [Recovered/Resolved]
  - Nephrolithiasis [Recovering/Resolving]
  - Drug ineffective [Unknown]
